FAERS Safety Report 17997923 (Version 2)
Quarter: 2020Q3

REPORT INFORMATION
  Report Type: Spontaneous
  Country: JP (occurrence: JP)
  Receive Date: 20200708
  Receipt Date: 20200902
  Transmission Date: 20201103
  Serious: No
  Sender: FDA-Public Use
  Company Number: JP-AMGEN-JPNSP2020087817

PATIENT
  Age: 69 Year
  Sex: Male
  Weight: 53 kg

DRUGS (1)
  1. PRALIA [Suspect]
     Active Substance: DENOSUMAB
     Indication: OSTEOPOROSIS
     Dosage: 60 MG, ONCE EVERY 6 MO
     Route: 058
     Dates: start: 20170222, end: 20200422

REACTIONS (1)
  - Tooth fracture [Not Recovered/Not Resolved]

NARRATIVE: CASE EVENT DATE: 20200601
